FAERS Safety Report 22215923 (Version 1)
Quarter: 2023Q2

REPORT INFORMATION
  Report Type: Spontaneous
  Country: US (occurrence: US)
  Receive Date: 20230417
  Receipt Date: 20230417
  Transmission Date: 20230721
  Serious: No
  Sender: FDA-Public Use
  Company Number: US-JNJFOC-20230376189

PATIENT
  Age: 5 Year
  Sex: Female

DRUGS (2)
  1. CETIRIZINE HYDROCHLORIDE [Suspect]
     Active Substance: CETIRIZINE HYDROCHLORIDE
     Indication: Cough
     Route: 065
  2. TYLENOL COLD + COUGH + SORE THROAT [Concomitant]
     Indication: Cough
     Route: 048

REACTIONS (1)
  - Off label use [Unknown]
